FAERS Safety Report 17878675 (Version 1)
Quarter: 2020Q2

REPORT INFORMATION
  Report Type: Spontaneous
  Country: US (occurrence: US)
  Receive Date: 20200610
  Receipt Date: 20200610
  Transmission Date: 20200714
  Serious: No
  Sender: FDA-Public Use
  Company Number: US-SPECGX-T201908917

PATIENT
  Age: 73 Year
  Sex: Male

DRUGS (2)
  1. HYDROCODONE/ACETAMINOPHEN [Suspect]
     Active Substance: ACETAMINOPHEN\HYDROCODONE
     Indication: PAIN
     Dosage: 1 DOSAGE FORM,  PERIODICALLY AT NIGHT,  FOR ABOUT A WEEK
     Route: 065
  2. HYDROCODONE/ACETAMINOPHEN [Suspect]
     Active Substance: ACETAMINOPHEN\HYDROCODONE
     Dosage: HALF TABLET,FOR ABOUT 6 MONTHS
     Route: 065

REACTIONS (2)
  - Wrong technique in product usage process [Unknown]
  - Therapeutic response unexpected [Not Recovered/Not Resolved]
